FAERS Safety Report 6579953-1 (Version None)
Quarter: 2010Q1

REPORT INFORMATION
  Report Type: 
  Country: None (occurrence: None)
  Receive Date: 20100212
  Receipt Date: 20100203
  Transmission Date: 20100710
  Serious: Yes (Other)
  Sender: FDA-Public Use
  Company Number: JP-PFIZER INC-2010017298

PATIENT
  Age: 78 Year
  Sex: Male

DRUGS (1)
  1. ALDACTONE [Suspect]
     Dosage: 25 MG, 1X/DAY
     Route: 048

REACTIONS (1)
  - BLOOD CREATININE INCREASED [None]
